FAERS Safety Report 7988616-7 (Version None)
Quarter: 2011Q4

REPORT INFORMATION
  Report Type: 
  Country: None (occurrence: None)
  Receive Date: 20111218
  Receipt Date: 20060406
  Transmission Date: 20120403
  Serious: Yes (Death)
  Sender: FDA-Public Use
  Company Number: PHHY2006CL009336

PATIENT
  Age: 54 Year

DRUGS (1)
  1. ZELMAC [Suspect]

REACTIONS (1)
  - GALLBLADDER CANCER [None]
